FAERS Safety Report 4874967-1 (Version None)
Quarter: 2006Q1

REPORT INFORMATION
  Report Type: 
  Country: None (occurrence: None)
  Receive Date: 20060105
  Receipt Date: 20051223
  Transmission Date: 20060701
  Serious: Yes (Hospitalization, Other)
  Sender: FDA-Public Use
  Company Number: HQWYE934409DEC05

PATIENT
  Age: 28 Year
  Sex: Male

DRUGS (11)
  1. RAPAMUNE [Suspect]
     Indication: PROPHYLAXIS AGAINST TRANSPLANT REJECTION
     Dosage: SEE IMAGE
     Route: 048
     Dates: start: 20050210, end: 20050101
  2. RAPAMUNE [Suspect]
     Indication: PROPHYLAXIS AGAINST TRANSPLANT REJECTION
     Dosage: SEE IMAGE
     Route: 048
     Dates: start: 20050101
  3. PREDNISONE [Concomitant]
  4. VALCYTE [Concomitant]
  5. SEPTRA [Concomitant]
  6. PREVACID [Concomitant]
  7. LOPRESSOR [Concomitant]
  8. MINOXIDIL [Concomitant]
  9. LASIX [Concomitant]
  10. CLONIDINE [Concomitant]
  11. ZENAPAX [Concomitant]

REACTIONS (6)
  - DECREASED APPETITE [None]
  - HYPERGLYCAEMIA [None]
  - KIDNEY TRANSPLANT REJECTION [None]
  - MALAISE [None]
  - PRODUCTIVE COUGH [None]
  - VOMITING [None]
